FAERS Safety Report 12062252 (Version 1)
Quarter: 2016Q1

REPORT INFORMATION
  Report Type: Report from Study
  Country: US (occurrence: US)
  Receive Date: 20160210
  Receipt Date: 20160210
  Transmission Date: 20160526
  Serious: No
  Sender: FDA-Public Use
  Company Number: US-AMGEN-USASL2016012410

PATIENT
  Age: 74 Year
  Sex: Male

DRUGS (1)
  1. ENBREL [Suspect]
     Active Substance: ETANERCEPT
     Indication: RHEUMATOID ARTHRITIS
     Dosage: 50 MG, QWK
     Route: 065
     Dates: start: 20160111

REACTIONS (4)
  - Peripheral swelling [Recovering/Resolving]
  - Pain in extremity [Unknown]
  - Fatigue [Unknown]
  - Joint swelling [Unknown]

NARRATIVE: CASE EVENT DATE: 2016
